FAERS Safety Report 15643599 (Version 1)
Quarter: 2018Q4

REPORT INFORMATION
  Report Type: Report from Study
  Country: CA (occurrence: CA)
  Receive Date: 20181121
  Receipt Date: 20181121
  Transmission Date: 20190205
  Serious: Yes (Death, Hospitalization)
  Sender: FDA-Public Use
  Company Number: CA-PFIZER INC-2018475705

PATIENT
  Age: 78 Year
  Sex: Male

DRUGS (7)
  1. MORPHINE SULFATE. [Suspect]
     Active Substance: MORPHINE SULFATE
     Indication: BACK PAIN
  2. JAKAVI [Suspect]
     Active Substance: RUXOLITINIB
     Indication: MYELOFIBROSIS
     Dosage: 5 MG, 2X/DAY
     Route: 048
  3. EPOETIN ALFA [Concomitant]
     Active Substance: ERYTHROPOIETIN
     Dosage: 60 DF, UNK
  4. MORPHINE SULFATE. [Suspect]
     Active Substance: MORPHINE SULFATE
     Indication: ARTHRALGIA
  5. MORPHINE SULFATE. [Suspect]
     Active Substance: MORPHINE SULFATE
     Indication: ABDOMINAL PAIN UPPER
  6. EPOETIN ALFA [Concomitant]
     Active Substance: ERYTHROPOIETIN
     Dosage: 40 DF, UNK
  7. MORPHINE SULFATE. [Suspect]
     Active Substance: MORPHINE SULFATE
     Indication: PAIN IN EXTREMITY
     Dosage: UNK [1 EVERY 4 HOUR(S)]

REACTIONS (24)
  - Abdominal pain [Fatal]
  - Joint swelling [Fatal]
  - Arthralgia [Fatal]
  - Dizziness [Fatal]
  - Pain [Fatal]
  - Weight decreased [Fatal]
  - Decreased appetite [Fatal]
  - Night sweats [Fatal]
  - Death [Fatal]
  - Drug ineffective [Fatal]
  - Pain in extremity [Fatal]
  - Loss of consciousness [Fatal]
  - Weight increased [Fatal]
  - Abdominal pain upper [Fatal]
  - Asthenia [Fatal]
  - Back pain [Fatal]
  - Muscle spasms [Fatal]
  - Skin discolouration [Fatal]
  - Splenomegaly [Fatal]
  - Anaemia [Fatal]
  - Concomitant disease aggravated [Fatal]
  - Eating disorder [Fatal]
  - Dehydration [Fatal]
  - Vomiting [Fatal]
